FAERS Safety Report 22595860 (Version 1)
Quarter: 2023Q2

REPORT INFORMATION
  Report Type: Spontaneous
  Country: US (occurrence: None)
  Receive Date: 20230612
  Receipt Date: 20230612
  Transmission Date: 20230721
  Serious: No
  Sender: FDA-Public Use
  Company Number: None

PATIENT
  Sex: Female

DRUGS (1)
  1. LUPRON DEPOT [Suspect]
     Active Substance: LEUPROLIDE ACETATE
     Indication: Menstruation irregular
     Dosage: OTHER FREQUENCY : OTHER;?
     Route: 030

REACTIONS (3)
  - Injection site erythema [None]
  - Injection site vesicles [None]
  - Injection related reaction [None]
